FAERS Safety Report 4289115-9 (Version None)
Quarter: 2004Q1

REPORT INFORMATION
  Report Type: 
  Country: None (occurrence: None)
  Receive Date: 20040210
  Receipt Date: 20040129
  Transmission Date: 20041129
  Serious: Yes (Other)
  Sender: FDA-Public Use
  Company Number: 200410399FR

PATIENT
  Sex: Female

DRUGS (1)
  1. TAXOTERE [Suspect]
     Indication: OVARIAN CANCER

REACTIONS (2)
  - METASTASES TO SPINE [None]
  - OPTIC NEURITIS RETROBULBAR [None]
